FAERS Safety Report 24553330 (Version 1)
Quarter: 2024Q4

REPORT INFORMATION
  Report Type: Spontaneous
  Country: BR (occurrence: BR)
  Receive Date: 20241028
  Receipt Date: 20241028
  Transmission Date: 20250115
  Serious: Yes (Hospitalization, Other)
  Sender: AMGEN
  Company Number: BR-PFIZER INC-PV202400137600

PATIENT
  Sex: Female

DRUGS (1)
  1. ENBREL [Suspect]
     Active Substance: ETANERCEPT
     Indication: Rheumatoid arthritis
     Dosage: UNK
     Route: 065
     Dates: start: 201609, end: 201712

REACTIONS (2)
  - Diabetes mellitus [Unknown]
  - Pneumonia [Unknown]

NARRATIVE: CASE EVENT DATE: 20170101
